FAERS Safety Report 5226594-4 (Version None)
Quarter: 2007Q1

REPORT INFORMATION
  Report Type: 
  Country: None (occurrence: None)
  Receive Date: 20070201
  Receipt Date: 20070129
  Transmission Date: 20070707
  Serious: Yes (Disabling, Other)
  Sender: FDA-Public Use
  Company Number: US-BOEHRINGER INGELHEIM PHARMACEUTICALS, INC.-2007-BP-01442BP

PATIENT
  Sex: Male

DRUGS (1)
  1. FLOMAX [Suspect]
     Route: 048

REACTIONS (4)
  - BLINDNESS [None]
  - FLOPPY IRIS SYNDROME [None]
  - RETINAL DETACHMENT [None]
  - VISUAL DISTURBANCE [None]
